FAERS Safety Report 5957525-7 (Version None)
Quarter: 2008Q4

REPORT INFORMATION
  Report Type: 
  Country: None (occurrence: None)
  Receive Date: 20081107
  Receipt Date: 20081023
  Transmission Date: 20090506
  Serious: Yes (Hospitalization)
  Sender: FDA-Public Use
  Company Number: 2008BI017857

PATIENT
  Age: 45 Year
  Sex: Male

DRUGS (1)
  1. TYSABRI [Suspect]
     Indication: MULTIPLE SCLEROSIS
     Dosage: 300 MG; QM; IV
     Route: 042
     Dates: start: 20071213

REACTIONS (4)
  - CELLULITIS STREPTOCOCCAL [None]
  - CLOSTRIDIUM DIFFICILE COLITIS [None]
  - INFLAMMATION [None]
  - MULTIPLE SCLEROSIS RELAPSE [None]
